FAERS Safety Report 18643440 (Version 1)
Quarter: 2020Q4

REPORT INFORMATION
  Report Type: Spontaneous
  Country: AT (occurrence: AT)
  Receive Date: 20201221
  Receipt Date: 20201221
  Transmission Date: 20210114
  Serious: Yes (Other)
  Sender: FDA-Public Use
  Company Number: AT-PFIZER INC-2020495811

PATIENT
  Age: 64 Year
  Sex: Male

DRUGS (24)
  1. RITUXIMAB. [Suspect]
     Active Substance: RITUXIMAB
     Indication: DIFFUSE LARGE B-CELL LYMPHOMA
     Dosage: UNK (6 CYCLES R-CHOP)
     Dates: start: 201611, end: 201704
  2. CYTARABINE. [Suspect]
     Active Substance: CYTARABINE
     Indication: DIFFUSE LARGE B-CELL LYMPHOMA
     Dosage: UNK (HIGH DOSE BEAM)
     Dates: start: 201903
  3. POLATUZUMAB VEDOTIN. [Suspect]
     Active Substance: POLATUZUMAB VEDOTIN
     Dosage: UNK (2 ADDITIONAL CYCLES R-POLA)
     Route: 065
     Dates: start: 202009, end: 202010
  4. RITUXIMAB. [Suspect]
     Active Substance: RITUXIMAB
     Indication: DIFFUSE LARGE B-CELL LYMPHOMA
     Dosage: UNK (2 ADDITIONAL CYCLES R-POLA)
     Dates: start: 202009, end: 202010
  5. DOXORUBICIN HCL [Suspect]
     Active Substance: DOXORUBICIN HYDROCHLORIDE
     Indication: DIFFUSE LARGE B-CELL LYMPHOMA
     Dosage: UNK (6 CYCLES R-CHOP )
     Dates: start: 201611, end: 201704
  6. GEMCITABINE. [Suspect]
     Active Substance: GEMCITABINE
     Indication: DIFFUSE LARGE B-CELL LYMPHOMA
     Dosage: UNK (4 CYCLES R-GDP)
     Route: 065
     Dates: start: 201812
  7. MELPHALAN. [Suspect]
     Active Substance: MELPHALAN
     Indication: DIFFUSE LARGE B-CELL LYMPHOMA
     Dosage: UNK (HIGH DOSE BEAM)
     Dates: start: 201903
  8. POLATUZUMAB VEDOTIN. [Suspect]
     Active Substance: POLATUZUMAB VEDOTIN
     Indication: DIFFUSE LARGE B-CELL LYMPHOMA
     Dosage: UNK (BRIDGING THERAPY)
     Route: 065
     Dates: start: 20191205
  9. VINCRISTINE SULFATE. [Suspect]
     Active Substance: VINCRISTINE SULFATE
     Dosage: UNK (6 CYCLES R-CHOP)
     Dates: start: 201611, end: 201704
  10. CISPLATIN. [Suspect]
     Active Substance: CISPLATIN
     Indication: DIFFUSE LARGE B-CELL LYMPHOMA
     Dosage: UNK (4 CYCLES R-GDP)
     Dates: start: 201812
  11. CARMUSTINE. [Suspect]
     Active Substance: CARMUSTINE
     Indication: DIFFUSE LARGE B-CELL LYMPHOMA
     Dosage: UNK (HIGH DOSE BEAM)
     Dates: start: 201903
  12. PREDNISONE. [Suspect]
     Active Substance: PREDNISONE
     Indication: DIFFUSE LARGE B-CELL LYMPHOMA
     Dosage: UNK (6 CYCLES R-CHOP)
     Dates: start: 201611, end: 201704
  13. FLUDARABINE [Suspect]
     Active Substance: FLUDARABINE PHOSPHATE
     Indication: LYMPHOCYTE ADOPTIVE THERAPY
     Dosage: UNK (LYMPHODEPLETING CHEMOTHERAPY)
     Dates: start: 20191223, end: 20191224
  14. RITUXIMAB. [Suspect]
     Active Substance: RITUXIMAB
     Dosage: UNK (BRIDGING THERAPY)
     Dates: start: 20191205
  15. BENDAMUSTINE [Suspect]
     Active Substance: BENDAMUSTINE
     Dosage: UNK (BRIDGING THERAPY)
     Dates: start: 20191205
  16. RITUXIMAB. [Suspect]
     Active Substance: RITUXIMAB
     Dosage: UNK (4 CYCLES RITUXIMAB/POLATUZUMAB)
     Dates: start: 202005, end: 202007
  17. DEXAMETHASONE. [Suspect]
     Active Substance: DEXAMETHASONE
     Indication: DIFFUSE LARGE B-CELL LYMPHOMA
     Dosage: UNK (4 CYCLES R-GDP)
     Dates: start: 201812
  18. BENDAMUSTINE [Suspect]
     Active Substance: BENDAMUSTINE
     Indication: DIFFUSE LARGE B-CELL LYMPHOMA
     Dosage: UNK (3 CYCLES)
     Dates: start: 201809
  19. CYCLOPHOSPHAMIDE. [Suspect]
     Active Substance: CYCLOPHOSPHAMIDE
     Indication: LYMPHOCYTE ADOPTIVE THERAPY
     Dosage: UNK (6 CYCLES R-CHOP)
     Dates: start: 201611, end: 201704
  20. CYCLOPHOSPHAMIDE. [Suspect]
     Active Substance: CYCLOPHOSPHAMIDE
     Indication: DIFFUSE LARGE B-CELL LYMPHOMA
     Dosage: UNK (LYMPHODEPLETING CHEMOTHERAPY)
     Dates: start: 20191223, end: 20191224
  21. POLATUZUMAB VEDOTIN. [Suspect]
     Active Substance: POLATUZUMAB VEDOTIN
     Dosage: UNK (4 CYCLES RITUXIMAB/POLATUZUMAB)
     Route: 065
     Dates: start: 202005, end: 202007
  22. RITUXIMAB. [Suspect]
     Active Substance: RITUXIMAB
     Dosage: UNK (4 CYCLES WITH R-GDP)
     Dates: start: 201812
  23. ETOPOSIDE. [Suspect]
     Active Substance: ETOPOSIDE
     Indication: DIFFUSE LARGE B-CELL LYMPHOMA
     Dosage: UNK (HIGH DOSE BEAM)
     Dates: start: 201903
  24. OBINUTUZUMAB. [Suspect]
     Active Substance: OBINUTUZUMAB
     Indication: DIFFUSE LARGE B-CELL LYMPHOMA
     Dosage: UNK (3 CYCLES)
     Dates: start: 201809

REACTIONS (3)
  - Myelosuppression [Unknown]
  - Neoplasm progression [Unknown]
  - Off label use [Unknown]

NARRATIVE: CASE EVENT DATE: 201811
